FAERS Safety Report 8775024 (Version 1)
Quarter: 2012Q4

REPORT INFORMATION
  Report Type: 
  Country: FR (occurrence: FR)
  Receive Date: 20120910
  Receipt Date: 20120910
  Transmission Date: 20130627
  Serious: Yes (Life-Threatening)
  Sender: FDA-Public Use
  Company Number: FR-GE HEALTHCARE MEDICAL DIAGNOSTICS-VISP-NO-1209S-0360

PATIENT
  Age: 59 Year
  Sex: Female

DRUGS (1)
  1. VISIPAQUE [Suspect]
     Indication: ISCHAEMIA
     Dosage: dose not reported
     Route: 013
     Dates: start: 20120709, end: 20120709

REACTIONS (3)
  - Anuria [Not Recovered/Not Resolved]
  - Blood creatinine increased [Not Recovered/Not Resolved]
  - Renal failure acute [Not Recovered/Not Resolved]
